FAERS Safety Report 4519760-4 (Version None)
Quarter: 2004Q4

REPORT INFORMATION
  Report Type: 
  Country: None (occurrence: None)
  Receive Date: 20041203
  Receipt Date: 20041203
  Transmission Date: 20050328
  Serious: Yes (Hospitalization)
  Sender: FDA-Public Use
  Company Number: None

PATIENT
  Age: 82 Year
  Sex: Female

DRUGS (1)
  1. ATENOLOL [Suspect]

REACTIONS (3)
  - BRADYCARDIA [None]
  - HYPOTENSION [None]
  - NODAL RHYTHM [None]
